FAERS Safety Report 6773226-X (Version None)
Quarter: 2010Q2

REPORT INFORMATION
  Report Type: 
  Country: None (occurrence: None)
  Receive Date: 20100616
  Receipt Date: 20100317
  Transmission Date: 20101027
  Serious: No
  Sender: FDA-Public Use
  Company Number: US-ABBOTT-10P-163-0634007-00

PATIENT
  Age: 60 Year
  Sex: Female

DRUGS (1)
  1. TRILIPIX [Suspect]
     Indication: DYSLIPIDAEMIA
     Route: 048

REACTIONS (2)
  - INCORRECT DRUG ADMINISTRATION DURATION [None]
  - PRODUCT TASTE ABNORMAL [None]
